FAERS Safety Report 9272602 (Version 1)
Quarter: 2013Q2

REPORT INFORMATION
  Report Type: Spontaneous
  Country: AU (occurrence: AU)
  Receive Date: 20130506
  Receipt Date: 20130506
  Transmission Date: 20140414
  Serious: Yes (Death)
  Sender: FDA-Public Use
  Company Number: AU-ASTRAZENECA-2013SE30441

PATIENT
  Sex: Male

DRUGS (3)
  1. BRILINTA [Suspect]
     Dosage: TWICE DAILY
     Route: 048
     Dates: start: 2013, end: 2013
  2. BRILINTA [Suspect]
     Dosage: ONCE DAILY
     Route: 048
     Dates: start: 2013, end: 2013
  3. BRILINTA [Suspect]
     Dosage: TWICE DAILY
     Route: 048
     Dates: start: 2013, end: 2013

REACTIONS (1)
  - Death [Fatal]
